FAERS Safety Report 6821156-7 (Version None)
Quarter: 2010Q3

REPORT INFORMATION
  Report Type: 
  Country: None (occurrence: None)
  Receive Date: 20100707
  Receipt Date: 20080118
  Transmission Date: 20110219
  Serious: No
  Sender: FDA-Public Use
  Company Number: US-PFIZER INC-2007088485

PATIENT
  Age: 63 Year
  Sex: Female
  Weight: 44 kg

DRUGS (3)
  1. VISTARIL CAP [Suspect]
  2. HYDROXYZINE HYDROCHLORIDE [Suspect]
     Route: 048
  3. ATENOLOL [Concomitant]

REACTIONS (5)
  - COLD SWEAT [None]
  - DIZZINESS [None]
  - HYPERHIDROSIS [None]
  - NASOPHARYNGITIS [None]
  - TREMOR [None]
